FAERS Safety Report 6937184-7 (Version None)
Quarter: 2010Q3

REPORT INFORMATION
  Report Type: 
  Country: None (occurrence: None)
  Receive Date: 20100823
  Receipt Date: 20100809
  Transmission Date: 20110219
  Serious: Yes (Hospitalization)
  Sender: FDA-Public Use
  Company Number: A0850991A

PATIENT
  Age: 57 Year
  Sex: Female
  Weight: 56.4 kg

DRUGS (4)
  1. AVANDIA [Suspect]
     Dosage: 4MG TWICE PER DAY
     Route: 048
     Dates: start: 20050101, end: 20071001
  2. AVANDAMET [Suspect]
     Indication: DIABETES MELLITUS
     Route: 048
  3. FOSAMAX [Concomitant]
  4. CARDIZEM [Concomitant]

REACTIONS (1)
  - MYOCARDIAL INFARCTION [None]
